FAERS Safety Report 22118286 (Version 1)
Quarter: 2023Q1

REPORT INFORMATION
  Report Type: Spontaneous
  Country: US (occurrence: US)
  Receive Date: 20230321
  Receipt Date: 20230321
  Transmission Date: 20230418
  Serious: Yes (Other)
  Sender: FDA-Public Use
  Company Number: US-Hikma Pharmaceuticals USA Inc.-US-H14001-23-00851

PATIENT
  Sex: Male

DRUGS (1)
  1. IPRATROPIUM [Suspect]
     Active Substance: IPRATROPIUM
     Indication: Hypersensitivity
     Dosage: UNKNOWN
     Route: 045

REACTIONS (2)
  - Suspected transmission of an infectious agent via product [Unknown]
  - Product use issue [Unknown]
